FAERS Safety Report 7962405-1 (Version None)
Quarter: 2011Q4

REPORT INFORMATION
  Report Type: 
  Country: None (occurrence: None)
  Receive Date: 20111206
  Receipt Date: 20111128
  Transmission Date: 20120403
  Serious: Yes (Hospitalization)
  Sender: FDA-Public Use
  Company Number: UTC-012348

PATIENT
  Age: 32 Year
  Sex: Female
  Weight: 89.1 kg

DRUGS (4)
  1. REMODULIN [Suspect]
     Indication: PULMONARY ARTERIAL HYPERTENSION
     Dosage: 103.68 UG/KG (0.072 UG/KG,1 IN 1 MIN),SUBCUTANEOUS
     Route: 058
     Dates: start: 20100909
  2. ADCIRCA [Concomitant]
  3. COUMADIN [Concomitant]
  4. TRACLEER [Concomitant]

REACTIONS (5)
  - CHEST PAIN [None]
  - DYSPNOEA [None]
  - THERAPY CESSATION [None]
  - DEVICE FAILURE [None]
  - CONDITION AGGRAVATED [None]
